FAERS Safety Report 8999818 (Version 2)
Quarter: 2013Q1

REPORT INFORMATION
  Report Type: Spontaneous
  Country: JP (occurrence: JP)
  Receive Date: 20130102
  Receipt Date: 20130121
  Transmission Date: 20140127
  Serious: Yes (Hospitalization)
  Sender: FDA-Public Use
  Company Number: JP-AMGEN-JPNSP2012083668

PATIENT
  Age: 61 Year
  Sex: Female
  Weight: 43 kg

DRUGS (10)
  1. RANMARK [Suspect]
     Indication: METASTASES TO BONE
     Dosage: 120 MG, QD
     Route: 058
     Dates: start: 20120619, end: 20121106
  2. RANMARK [Suspect]
     Indication: BREAST CANCER
  3. NAVELBINE [Concomitant]
     Dosage: 36 MG/TIME
     Route: 065
     Dates: start: 20120403, end: 20120911
  4. MOBIC [Concomitant]
     Indication: PAIN
     Dosage: 10 MG, QD
     Route: 048
     Dates: start: 20111001
  5. PROTECADIN [Concomitant]
     Indication: GASTRITIS
     Dosage: 10 MG, BID
     Route: 048
     Dates: start: 20111001
  6. NAUZELIN [Concomitant]
     Indication: NAUSEA
     Route: 048
     Dates: start: 20120827
  7. MAGMITT [Concomitant]
     Dosage: UNKNOWN
     Route: 065
  8. GASMOTIN [Concomitant]
     Indication: DYSPEPSIA
     Dosage: 5 MG, TID
     Route: 048
     Dates: start: 20121002
  9. DECADRON [Concomitant]
     Indication: OEDEMA
     Dosage: 2 MG, BID
     Route: 048
     Dates: start: 20121026, end: 20121217
  10. NEXIUM [Concomitant]
     Indication: GASTRIC ULCER
     Dosage: 20 MG, QD
     Route: 048
     Dates: start: 20121114, end: 20121217

REACTIONS (2)
  - Renal failure acute [Recovered/Resolved with Sequelae]
  - Hypocalcaemia [Recovered/Resolved]
